FAERS Safety Report 23610981 (Version 1)
Quarter: 2024Q1

REPORT INFORMATION
  Report Type: Spontaneous
  Country: BR (occurrence: BR)
  Receive Date: 20240308
  Receipt Date: 20240308
  Transmission Date: 20240409
  Serious: Yes (Hospitalization, Other)
  Sender: FDA-Public Use
  Company Number: BR-Zuellig Korea-ATNAHS20240300639

PATIENT
  Age: 69 Year
  Sex: Female

DRUGS (8)
  1. VALIUM [Suspect]
     Active Substance: DIAZEPAM
     Indication: Anxiety
     Dosage: TOOK THE MEDICATION IN THE MORNING FOR WORK
     Route: 048
     Dates: start: 1985
  2. VALIUM [Suspect]
     Active Substance: DIAZEPAM
     Dosage: 1/2 TABLET
     Route: 048
     Dates: start: 20240219
  3. VALIUM [Suspect]
     Active Substance: DIAZEPAM
     Dosage: 2 TABLETS PER DAY
     Route: 048
  4. VALIUM [Suspect]
     Active Substance: DIAZEPAM
     Dosage: 1 TABLET IN THE MORNING AND 1 TABLET AT NIGHT
     Route: 048
  5. LOPERAMIDE [Concomitant]
     Active Substance: LOPERAMIDE
     Indication: Diarrhoea
     Dosage: DOSAGE OF 1 OR 2 TABLETS SPORADICALLY
     Route: 065
     Dates: start: 2015, end: 202312
  6. HYDROCHLOROTHIAZIDE [Concomitant]
     Active Substance: HYDROCHLOROTHIAZIDE
     Indication: Hypertension
     Dosage: DOSAGE OF 1 TABLET IN THE MORNING
     Route: 065
     Dates: start: 2022
  7. PURAN [Concomitant]
     Active Substance: LEVOTHYROXINE SODIUM
     Indication: Thyroid disorder
     Dosage: DOSAGE OF 1 TABLET PER DAY, STARTING APPROXIMATELY 10-11 YEARS AGO
     Route: 065
  8. VARICOSS [Concomitant]
     Indication: Varicose vein
     Dosage: DOSAGE OF 1 TABLET IN THE MORNING,
     Route: 065
     Dates: start: 202308

REACTIONS (10)
  - Motor dysfunction [Unknown]
  - Headache [Unknown]
  - Malaise [Unknown]
  - Somnolence [Unknown]
  - Dizziness [Unknown]
  - Hypersomnia [Unknown]
  - Drug dependence [Unknown]
  - Incorrect product administration duration [Unknown]
  - Megacolon [Unknown]
  - Sluggishness [Unknown]

NARRATIVE: CASE EVENT DATE: 20140805
